FAERS Safety Report 9460326 (Version 1)
Quarter: 2013Q3

REPORT INFORMATION
  Report Type: Spontaneous
  Country: CA (occurrence: None)
  Receive Date: 20130807
  Receipt Date: 20130807
  Transmission Date: 20140515
  Serious: Yes (Death)
  Sender: FDA-Public Use
  Company Number: SYM-2013-07615

PATIENT
  Sex: Male

DRUGS (1)
  1. WELLBUTRIN (BUPROPION HYDROCHLORIDE) [Suspect]
     Indication: PRODUCT USED FOR UNKNOWN INDICATION
     Route: 042

REACTIONS (9)
  - Muscular weakness [None]
  - Muscular weakness [None]
  - Euphoric mood [None]
  - Drug abuse [None]
  - Brain stem syndrome [None]
  - Spinal cord disorder [None]
  - Incorrect route of drug administration [None]
  - Arterial injury [None]
  - Wrong technique in drug usage process [None]
